FAERS Safety Report 4417930-7 (Version None)
Quarter: 2004Q3

REPORT INFORMATION
  Report Type: 
  Country: None (occurrence: None)
  Receive Date: 20040803
  Receipt Date: 20040723
  Transmission Date: 20050211
  Serious: Yes (Hospitalization)
  Sender: FDA-Public Use
  Company Number: 2004PK01271

PATIENT
  Age: 41 Year
  Sex: Male

DRUGS (4)
  1. TENORMIN [Suspect]
     Indication: HYPERTENSION
     Dosage: MONTHS
  2. STOCRIN [Suspect]
     Indication: HIV INFECTION
     Dosage: MONTHS
  3. TRIZVIR [Suspect]
     Indication: HIV INFECTION
     Dosage: MONTHS
  4. METHADON [Concomitant]

REACTIONS (1)
  - DIABETES MELLITUS [None]
